FAERS Safety Report 5877695-9 (Version None)
Quarter: 2008Q3

REPORT INFORMATION
  Report Type: 
  Country: None (occurrence: None)
  Receive Date: 20080911
  Receipt Date: 20080901
  Transmission Date: 20090109
  Serious: Yes (Hospitalization)
  Sender: FDA-Public Use
  Company Number: FR-JNJFOC-20080901056

PATIENT
  Age: 20 Year
  Sex: Male

DRUGS (4)
  1. IXPRIM [Suspect]
     Indication: PAIN
     Dosage: 37.5/325 MG TABLETS
     Route: 048
  2. LANTUS [Concomitant]
     Indication: TYPE 1 DIABETES MELLITUS
     Route: 065
  3. ARIXTRA [Concomitant]
     Route: 065
  4. HUMALOG [Concomitant]
     Indication: TYPE 1 DIABETES MELLITUS
     Route: 065

REACTIONS (1)
  - HYPOGLYCAEMIA [None]
